FAERS Safety Report 22194424 (Version 2)
Quarter: 2024Q2

REPORT INFORMATION
  Report Type: Spontaneous
  Country: FR (occurrence: FR)
  Receive Date: 20230411
  Receipt Date: 20240412
  Transmission Date: 20240716
  Serious: Yes (Life-Threatening, Hospitalization, Other)
  Sender: FDA-Public Use
  Company Number: FR-AstraZeneca-2023A043701

PATIENT
  Age: 70 Year
  Sex: Male
  Weight: 68 kg

DRUGS (13)
  1. CARBOPLATIN [Suspect]
     Active Substance: CARBOPLATIN
     Indication: Non-small cell lung cancer
     Dosage: 755 MILLIGRAM EVERY 3 WEEK
     Route: 065
     Dates: start: 20221228, end: 20221228
  2. CARBOPLATIN [Suspect]
     Active Substance: CARBOPLATIN
     Dosage: 840 MILLIGRAM EVERY 3 WEEK
     Route: 065
     Dates: start: 20230118, end: 20230118
  3. CARBOPLATIN [Suspect]
     Active Substance: CARBOPLATIN
     Dosage: 965 MILLIGRAM EVERY 3 WEEK
     Route: 065
     Dates: start: 20230208, end: 20230208
  4. PACLITAXEL [Suspect]
     Active Substance: PACLITAXEL
     Indication: Non-small cell lung cancer
     Dosage: 357 MILLIGRAM EVERY 3 WEEK MILLIGRAM
     Route: 065
     Dates: start: 20221228, end: 20221228
  5. PACLITAXEL [Suspect]
     Active Substance: PACLITAXEL
     Dosage: 357 MILLIGRAM EVERY 3 WEEK
     Route: 065
     Dates: start: 20230118, end: 20230118
  6. PACLITAXEL [Suspect]
     Active Substance: PACLITAXEL
     Dosage: 357 MILLIGRAM EVERY 3 WEEK
     Route: 065
     Dates: start: 20230208, end: 20230208
  7. DURVALUMAB [Suspect]
     Active Substance: DURVALUMAB
     Indication: Non-small cell lung cancer
     Dosage: 1500 MILLIGRAM VERY 3 WEEK
     Route: 042
     Dates: start: 20221228, end: 20221228
  8. DURVALUMAB [Suspect]
     Active Substance: DURVALUMAB
     Dosage: 1500 MILLIGRAM VERY 3 WEEK
     Route: 042
     Dates: start: 20230118, end: 20230118
  9. DURVALUMAB [Suspect]
     Active Substance: DURVALUMAB
     Dosage: 1500 MILLIGRAM VERY 3 WEEK
     Route: 042
     Dates: start: 20230208, end: 20230208
  10. DURVALUMAB [Suspect]
     Active Substance: DURVALUMAB
     Dosage: 1500 MILLIGRAM VERY 3 WEEK
     Route: 042
     Dates: start: 20230301, end: 20230301
  11. OLECLUMAB [Suspect]
     Active Substance: OLECLUMAB
     Indication: Non-small cell lung cancer
     Dosage: 3000 MILLIGRAM EVERY 3 WEEK
     Route: 042
     Dates: start: 20221228, end: 20221228
  12. OLECLUMAB [Suspect]
     Active Substance: OLECLUMAB
     Dosage: 3000 MILLIGRAM EVERY 3 WEEK
     Route: 042
     Dates: start: 20230118, end: 20230118
  13. OLECLUMAB [Suspect]
     Active Substance: OLECLUMAB
     Dosage: 33000 MILLIGRAM EVERY 3 WEEK000 MILLIGRAM
     Route: 042
     Dates: start: 20230208, end: 20230208

REACTIONS (3)
  - Hypokalaemia [Recovered/Resolved]
  - Febrile bone marrow aplasia [Recovered/Resolved]
  - Congenital aplasia [Recovered/Resolved]

NARRATIVE: CASE EVENT DATE: 20230214
